FAERS Safety Report 10219410 (Version 1)
Quarter: 2014Q2

REPORT INFORMATION
  Report Type: Spontaneous
  Country: US (occurrence: US)
  Receive Date: 20140605
  Receipt Date: 20140605
  Transmission Date: 20141212
  Serious: Yes (Other)
  Sender: FDA-Public Use
  Company Number: US-JNJFOC-20140518196

PATIENT
  Age: 68 Year
  Sex: Male
  Weight: 88.45 kg

DRUGS (3)
  1. XARELTO [Suspect]
     Indication: THROMBOSIS
     Route: 048
     Dates: start: 20140103, end: 201401
  2. XARELTO [Suspect]
     Indication: THROMBOSIS
     Route: 048
     Dates: start: 201401, end: 20140519
  3. CRESTOR [Concomitant]
     Indication: BLOOD CHOLESTEROL INCREASED
     Route: 048

REACTIONS (5)
  - Visual field defect [Recovering/Resolving]
  - Haemorrhagic infarction [Not Recovered/Not Resolved]
  - Eye disorder [Not Recovered/Not Resolved]
  - Migraine [Recovering/Resolving]
  - Dizziness [Unknown]
